FAERS Safety Report 7598571-X (Version None)
Quarter: 2011Q3

REPORT INFORMATION
  Report Type: 
  Country: None (occurrence: None)
  Receive Date: 20110708
  Receipt Date: 20110629
  Transmission Date: 20111222
  Serious: Yes (Hospitalization)
  Sender: FDA-Public Use
  Company Number: IT-ASTRAZENECA-2011SE37154

PATIENT
  Age: 13189 Day
  Sex: Female

DRUGS (5)
  1. ENTUMIN [Concomitant]
  2. VALIUM [Suspect]
     Indication: INTENTIONAL OVERDOSE
     Route: 048
     Dates: start: 20110611, end: 20110611
  3. SEROQUEL [Suspect]
     Indication: INTENTIONAL OVERDOSE
     Route: 048
     Dates: start: 20110611, end: 20110611
  4. SEROQUEL [Suspect]
     Route: 048
     Dates: start: 20110611, end: 20110611
  5. BEER [Suspect]
     Dosage: 2 GLASSES ONCE
     Route: 048
     Dates: start: 20110611, end: 20110611

REACTIONS (2)
  - CONFABULATION [None]
  - SOPOR [None]
